FAERS Safety Report 10037100 (Version 1)
Quarter: 2014Q1

REPORT INFORMATION
  Report Type: Spontaneous
  Country: US (occurrence: None)
  Receive Date: 20140102
  Receipt Date: 20140102
  Transmission Date: 20141002
  Serious: Yes (Hospitalization)
  Sender: FDA-Public Use
  Company Number: AUR-APL-2013-10729

PATIENT
  Age: 56 Year
  Sex: Male

DRUGS (2)
  1. METFORMIN (METFORMIN) [Suspect]
     Indication: TYPE 2 DIABETES MELLITUS
     Dosage: 1000 MG (500 MG,2 IN 1 D)
  2. LISINOPRIL (LISINOPRIL) [Concomitant]

REACTIONS (11)
  - Lactic acidosis [None]
  - Intercepted drug administration error [None]
  - Medication error [None]
  - Jaundice [None]
  - Ascites [None]
  - Oedema [None]
  - Haemodialysis [None]
  - Metabolic acidosis [None]
  - Mental status changes [None]
  - Respiratory failure [None]
  - Renal injury [None]
